FAERS Safety Report 5233951-9 (Version None)
Quarter: 2007Q1

REPORT INFORMATION
  Report Type: 
  Country: None (occurrence: None)
  Receive Date: 20070208
  Receipt Date: 20070205
  Transmission Date: 20070707
  Serious: Yes (Death)
  Sender: FDA-Public Use
  Company Number: US-PFIZER INC-2006130388

PATIENT
  Sex: Male

DRUGS (1)
  1. ZIPRASIDONE (CAPS) [Suspect]
     Indication: SCHIZOPHRENIA
     Route: 048

REACTIONS (1)
  - HYPERTENSIVE HEART DISEASE [None]
